FAERS Safety Report 8231514-4 (Version None)
Quarter: 2012Q1

REPORT INFORMATION
  Report Type: 
  Country: None (occurrence: None)
  Receive Date: 20120323
  Receipt Date: 20120320
  Transmission Date: 20120608
  Serious: Yes (Other)
  Sender: FDA-Public Use
  Company Number: PHEH2012US000622

PATIENT
  Sex: Female

DRUGS (12)
  1. AMLODIPINE [Concomitant]
  2. CALCIUM CARBONATE [Concomitant]
  3. BYSTOLIC [Concomitant]
  4. BYSTOLIC [Suspect]
     Indication: BLOOD PRESSURE
     Dosage: 5 MG, DAILY
  5. NEXIUM [Concomitant]
  6. MAGNESIUM [Concomitant]
     Dosage: 2 DF (UNK), DAILY
  7. IRON [Concomitant]
  8. VITAMIN E [Concomitant]
  9. SENIOR VITAMIN [Concomitant]
  10. DIOVAN HCT [Suspect]
     Indication: HYPERTENSION
     Dosage: 1 DF(320/25 MG), DAILY
  11. TEKTURNA [Suspect]
     Indication: BLOOD PRESSURE
     Dosage: 150 MG, DAILY
  12. VITAMIN B COMPLEX CAP [Concomitant]

REACTIONS (3)
  - BLOOD PRESSURE INCREASED [None]
  - BLOOD CREATININE INCREASED [None]
  - RENAL DISORDER [None]
